FAERS Safety Report 5121984-2 (Version None)
Quarter: 2006Q4

REPORT INFORMATION
  Report Type: 
  Country: None (occurrence: None)
  Receive Date: 20061006
  Receipt Date: 20060929
  Transmission Date: 20070319
  Serious: Yes (Life-Threatening, Hospitalization, Other)
  Sender: FDA-Public Use
  Company Number: US-KINGPHARMUSA00001-K200601245

PATIENT
  Age: 58 Year
  Sex: Male
  Weight: 66 kg

DRUGS (19)
  1. ALTACE [Suspect]
     Dates: end: 20060501
  2. EPOGEN [Suspect]
     Indication: DIALYSIS
     Dosage: 33300 IU, TIW
     Route: 042
     Dates: start: 20041105, end: 20060501
  3. EPOGEN [Suspect]
     Dosage: UNK, UNK
     Route: 042
  4. ASPIRIN [Suspect]
     Dates: start: 20041101, end: 20060501
  5. CLOPIDOGREL BISULFATE [Suspect]
     Dates: end: 20060501
  6. QUININE SULFATE [Suspect]
     Dates: end: 20060501
  7. HEPARIN [Suspect]
     Dates: end: 20060501
  8. ZOLPIDEM TARTRATE [Concomitant]
     Dates: start: 20041101
  9. CARVEDILOL [Concomitant]
  10. VITAMINS [Concomitant]
  11. INSULIN [Concomitant]
  12. ATORVASTATIN CALCIUM [Concomitant]
  13. LORAZEPAM [Concomitant]
  14. PREDNISONE TAB [Concomitant]
  15. SEVELAMER HYDROCHLORIDE [Concomitant]
  16. SINEMET [Concomitant]
  17. TUMS /00108001/ [Concomitant]
  18. AZATHIOPRINE [Concomitant]
     Dates: start: 19930101, end: 20050101
  19. CYCLOSPORINE [Concomitant]
     Dates: start: 19930101, end: 20050101

REACTIONS (12)
  - APLASTIC ANAEMIA [None]
  - CARDIO-RESPIRATORY ARREST [None]
  - CARNITINE DECREASED [None]
  - DIABETIC COMPLICATION [None]
  - HAEMODIALYSIS [None]
  - IMPAIRED HEALING [None]
  - LEG AMPUTATION [None]
  - LEUKOPENIA [None]
  - SUDDEN DEATH [None]
  - THERAPEUTIC RESPONSE DECREASED [None]
  - THROMBOCYTOPENIA [None]
  - TRANSPLANT FAILURE [None]
